FAERS Safety Report 8957787 (Version 4)
Quarter: 2013Q2

REPORT INFORMATION
  Report Type: Spontaneous
  Country: TW (occurrence: TW)
  Receive Date: 20121211
  Receipt Date: 20130503
  Transmission Date: 20140414
  Serious: Yes (Hospitalization, Other)
  Sender: FDA-Public Use
  Company Number: TW-MERCK-1212TWN003230

PATIENT
  Age: 53 Year
  Sex: Male

DRUGS (7)
  1. PEG-INTRON [Suspect]
     Indication: CHRONIC HEPATITIS C
     Dosage: 100 MICROGRAM, QW
     Route: 058
     Dates: start: 20121024, end: 20121204
  2. REBETOL [Suspect]
     Indication: CHRONIC HEPATITIS C
     Dosage: 1000 MG
     Route: 048
     Dates: start: 20121024, end: 20121204
  3. DOXAZOSIN MESYLATE [Concomitant]
     Indication: HYPERTENSION
     Dosage: 4 MG, QD
     Route: 048
  4. HYDROCHLOROTHIAZIDE (+) VALSARTAN [Concomitant]
     Indication: HYPERTENSION
     Dosage: 160/12.5 MG
     Route: 048
  5. PIOGLITAZONE HYDROCHLORIDE [Concomitant]
     Indication: HYPERTENSION
     Dosage: 15 MG, QD
     Route: 048
  6. METFORMIN [Concomitant]
     Indication: DIABETES MELLITUS
     Dosage: 500 MG, QD
     Route: 048
  7. ATORVASTATIN [Concomitant]
     Indication: HYPERCHOLESTEROLAEMIA
     Dosage: 10 MG, QD
     Route: 048

REACTIONS (1)
  - Sepsis [Recovering/Resolving]
